FAERS Safety Report 8047184 (Version 4)
Quarter: 2013Q2

REPORT INFORMATION
  Report Type: Spontaneous
  Country: AU (occurrence: AU)
  Receive Date: 20110721
  Receipt Date: 20130501
  Transmission Date: 20140414
  Serious: Yes (Life-Threatening, Hospitalization, Disabling)
  Sender: FDA-Public Use
  Company Number: AU-MPIJNJ-2011-02955

PATIENT
  Sex: 0

DRUGS (11)
  1. VELCADE [Suspect]
     Indication: PLASMA CELL MYELOMA
     Dosage: UNK
     Route: 042
     Dates: start: 201003, end: 201008
  2. VELCADE [Suspect]
     Dosage: UNK MG, UNK
     Route: 042
     Dates: start: 201105
  3. VELCADE [Suspect]
     Dosage: 3 MG, UNK
     Route: 058
     Dates: start: 20110610, end: 20110620
  4. INSULIN LISPRO [Concomitant]
     Indication: DIABETES MELLITUS
     Route: 065
  5. DIABEX [Concomitant]
     Indication: DIABETES MELLITUS
     Dosage: 500 MG, UNK
     Route: 048
  6. WARFARIN [Concomitant]
     Indication: PULMONARY EMBOLISM
     Dosage: 6 MG, UNK
     Route: 065
  7. BACTRIM [Concomitant]
     Route: 065
  8. VALTREX [Concomitant]
     Route: 065
  9. VENTOLIN                           /00139501/ [Concomitant]
     Route: 065
  10. SERETIDE                           /01420901/ [Concomitant]
     Route: 065
  11. PANADOL OSTEO [Concomitant]
     Route: 065

REACTIONS (7)
  - Pulmonary fibrosis [Unknown]
  - Pulmonary hypertension [Unknown]
  - Respiratory distress [Not Recovered/Not Resolved]
  - Disease progression [Unknown]
  - Restrictive pulmonary disease [Unknown]
  - Acute respiratory failure [Unknown]
  - Dyspnoea [Unknown]
